FAERS Safety Report 9035360 (Version 1)
Quarter: 2013Q1

REPORT INFORMATION
  Report Type: Report from Study
  Country: US (occurrence: US)
  Receive Date: 20130129
  Receipt Date: 20130129
  Transmission Date: 20140127
  Serious: No
  Sender: FDA-Public Use
  Company Number: US-ABBOTT-12P-163-0897844-00

PATIENT
  Age: 37 Year
  Sex: Male

DRUGS (4)
  1. HUMIRA 40 MG/ 0.8 ML PRE-FILLED SYRINGE [Suspect]
     Indication: RHEUMATOID ARTHRITIS
     Dates: start: 201107
  2. METHOTREXATE [Concomitant]
     Indication: ARTHRITIS
     Route: 048
  3. RELAFEN [Concomitant]
     Indication: ARTHRITIS
     Route: 048
  4. CADUET [Concomitant]
     Indication: HYPERTENSION
     Route: 048

REACTIONS (4)
  - Feeling abnormal [Recovered/Resolved]
  - Injection site pain [Recovered/Resolved]
  - Wrong technique in drug usage process [Recovered/Resolved]
  - Injection site haemorrhage [Recovered/Resolved]
